FAERS Safety Report 6497831-3 (Version None)
Quarter: 2009Q4

REPORT INFORMATION
  Report Type: 
  Country: None (occurrence: None)
  Receive Date: 20091125
  Receipt Date: 20081113
  Transmission Date: 20100525
  Serious: Yes (Hospitalization)
  Sender: FDA-Public Use
  Company Number: 2008BH012479

PATIENT
  Age: 3 Year
  Sex: Male

DRUGS (7)
  1. DIANEAL [Suspect]
     Indication: PERITONEAL DIALYSIS
     Dosage: 2.9 L ; EVERY DAY ; IP
     Route: 033
     Dates: start: 20060818
  2. EPOGEN [Concomitant]
  3. CALCIUM CARBONATE [Concomitant]
  4. FOLATE [Concomitant]
  5. IRON [Concomitant]
  6. CALCITRIOL [Concomitant]
  7. MULTI-VITAMIN [Concomitant]

REACTIONS (2)
  - PERITONEAL DIALYSIS COMPLICATION [None]
  - PERITONITIS BACTERIAL [None]
